FAERS Safety Report 5831038-5 (Version None)
Quarter: 2008Q3

REPORT INFORMATION
  Report Type: 
  Country: None (occurrence: None)
  Receive Date: 20080801
  Receipt Date: 20080313
  Transmission Date: 20090109
  Serious: No
  Sender: FDA-Public Use
  Company Number: US-BRISTOL-MYERS SQUIBB COMPANY-14114540

PATIENT
  Sex: Male
  Weight: 111 kg

DRUGS (6)
  1. COUMADIN [Suspect]
     Indication: THROMBOSIS
     Dosage: 5 MG 5 X WEEK ALTERNATING WITH 2.5 MG 2 X WEEK
     Dates: start: 20070901
  2. LISINOPRIL [Concomitant]
  3. TOPROL-XL [Concomitant]
  4. ARTHROTEC [Concomitant]
  5. NASONEX [Concomitant]
  6. METROGEL [Concomitant]

REACTIONS (2)
  - BLOOD URINE PRESENT [None]
  - SKIN INFECTION [None]
